FAERS Safety Report 8979793 (Version 1)
Quarter: 2012Q4

REPORT INFORMATION
  Report Type: 
  Country: US (occurrence: US)
  Receive Date: 20121221
  Receipt Date: 20121221
  Transmission Date: 20130627
  Serious: Yes (Other)
  Sender: FDA-Public Use
  Company Number: US-ASTRAZENECA-2012SE94594

PATIENT
  Age: 51 Year
  Sex: Female
  Weight: 90.7 kg

DRUGS (2)
  1. SEROQUEL [Suspect]
     Indication: BIPOLAR DISORDER
     Route: 048
     Dates: start: 2002
  2. SEROQUEL [Suspect]
     Indication: BIPOLAR DISORDER
     Route: 048
     Dates: end: 20121214

REACTIONS (6)
  - Limb crushing injury [Recovering/Resolving]
  - Headache [Unknown]
  - Insomnia [Unknown]
  - Nausea [Unknown]
  - Hyperhidrosis [Unknown]
  - Intentional drug misuse [Unknown]
